FAERS Safety Report 18634434 (Version 5)
Quarter: 2021Q1

REPORT INFORMATION
  Report Type: Spontaneous
  Country: US (occurrence: US)
  Receive Date: 20201218
  Receipt Date: 20210113
  Transmission Date: 20210419
  Serious: No
  Sender: FDA-Public Use
  Company Number: US-BIOGEN-2020BI00959618

PATIENT
  Sex: Female

DRUGS (1)
  1. TECFIDERA [Suspect]
     Active Substance: DIMETHYL FUMARATE
     Indication: MULTIPLE SCLEROSIS
     Route: 065
     Dates: start: 20201008, end: 2020

REACTIONS (6)
  - Therapeutic product effect decreased [Recovered/Resolved]
  - Urinary incontinence [Unknown]
  - Drug intolerance [Recovered/Resolved]
  - Multiple sclerosis [Unknown]
  - Weight increased [Not Recovered/Not Resolved]
  - Anal incontinence [Unknown]

NARRATIVE: CASE EVENT DATE: 2020
